FAERS Safety Report 9372358 (Version 2)
Quarter: 2013Q3

REPORT INFORMATION
  Report Type: Spontaneous
  Country: BR (occurrence: BR)
  Receive Date: 20130627
  Receipt Date: 20130821
  Transmission Date: 20140515
  Serious: Yes (Other)
  Sender: FDA-Public Use
  Company Number: BR-AMGEN-BRASP2013045144

PATIENT
  Age: 57 Year
  Sex: Female

DRUGS (5)
  1. GRANULOKINE [Suspect]
     Indication: WHITE BLOOD CELL COUNT INCREASED
     Dosage: UNK
     Route: 065
  2. PEGASYS [Suspect]
     Indication: HEPATITIS C
     Dosage: 180 MUG, 1 IN 1 WK
     Route: 065
     Dates: start: 20120124, end: 20130604
  3. RIBAVIRIN [Suspect]
     Indication: HEPATITIS C
     Dosage: 2 TABLTES IN MORNING AND 1 IN EVENING
     Route: 065
     Dates: start: 20120124, end: 20130604
  4. FORASEQ [Concomitant]
     Indication: ASTHMA
     Dosage: 1 DF, 1 IN 1 D
  5. EPOETIN NOS [Concomitant]
     Dosage: UNK

REACTIONS (13)
  - Neutrophil count decreased [Recovered/Resolved]
  - Anaemia [Recovered/Resolved]
  - Euphoric mood [Unknown]
  - Red blood cell count decreased [Unknown]
  - Transaminases decreased [Unknown]
  - Blood test abnormal [Unknown]
  - Tremor [Unknown]
  - White blood cell disorder [Not Recovered/Not Resolved]
  - Headache [Unknown]
  - Nervousness [Unknown]
  - Drug ineffective [Unknown]
  - White blood cell count decreased [Unknown]
  - Blood cholesterol decreased [Unknown]
